FAERS Safety Report 6814213-2 (Version None)
Quarter: 2010Q3

REPORT INFORMATION
  Report Type: 
  Country: None (occurrence: None)
  Receive Date: 20100702
  Receipt Date: 20100630
  Transmission Date: 20110219
  Serious: Yes (Death)
  Sender: FDA-Public Use
  Company Number: JP-JNJFOC-20100601468

PATIENT
  Sex: Male

DRUGS (10)
  1. DUROTEP MT [Suspect]
     Indication: OSTEOARTHRITIS
     Route: 062
  2. DUROTEP MT [Suspect]
     Indication: BACK PAIN
     Route: 062
  3. BUPRENORPHINE HYDROCHLORIDE [Suspect]
     Indication: PRODUCT USED FOR UNKNOWN INDICATION
     Route: 065
  4. LOXONIN [Concomitant]
     Indication: OSTEOARTHRITIS
     Route: 065
  5. LOXONIN [Concomitant]
     Indication: BACK PAIN
     Route: 065
  6. PENTAZOCINE LACTATE [Concomitant]
     Indication: OSTEOARTHRITIS
     Route: 042
  7. PENTAZOCINE LACTATE [Concomitant]
     Indication: BACK PAIN
     Route: 042
  8. CODEINE SULFATE [Concomitant]
     Indication: OSTEOARTHRITIS
     Route: 048
  9. CODEINE SULFATE [Concomitant]
     Indication: BACK PAIN
     Route: 048
  10. DIAZEPAM [Concomitant]
     Indication: PRODUCT USED FOR UNKNOWN INDICATION
     Route: 065

REACTIONS (1)
  - MYOCARDIAL ISCHAEMIA [None]
